FAERS Safety Report 24527186 (Version 1)
Quarter: 2024Q4

REPORT INFORMATION
  Report Type: Report from Study
  Country: US (occurrence: US)
  Receive Date: 20241021
  Receipt Date: 20241021
  Transmission Date: 20250115
  Serious: No
  Sender: ROCHE
  Company Number: US-ROCHE-3449337

PATIENT

DRUGS (4)
  1. COBIMETINIB [Suspect]
     Active Substance: COBIMETINIB
     Indication: Metastatic malignant melanoma
     Route: 065
  2. VEMURAFENIB [Suspect]
     Active Substance: VEMURAFENIB
     Indication: Metastatic malignant melanoma
     Route: 065
  3. BEVACIZUMAB [Suspect]
     Active Substance: BEVACIZUMAB
     Indication: Macular oedema
     Route: 050
  4. BEVACIZUMAB [Suspect]
     Active Substance: BEVACIZUMAB
     Indication: Uveitis

REACTIONS (8)
  - Central serous chorioretinopathy [Unknown]
  - Dry eye [Unknown]
  - Optic neuritis [Unknown]
  - Uveitis [Unknown]
  - Retinal vasculitis [Unknown]
  - Scleritis [Unknown]
  - Off label use [Unknown]
  - Off label use [Unknown]
